FAERS Safety Report 8544578-5 (Version None)
Quarter: 2012Q2

REPORT INFORMATION
  Report Type: 
  Country: None (occurrence: None)
  Receive Date: 20120416
  Receipt Date: 20101112
  Transmission Date: 20120825
  Serious: Yes (Other)
  Sender: FDA-Public Use
  Company Number: PHHY2010US68304

PATIENT
  Age: 82 Year
  Sex: Female

DRUGS (5)
  1. VALTURNA [Suspect]
     Dosage: UNK
  2. VERAPAMIL [Suspect]
     Dosage: UNK
  3. SYNTHROID [Suspect]
     Dosage: UNK
  4. DIOVAN [Suspect]
     Indication: HYPERTENSION
     Dosage: UNK
  5. LEVOTHYROXINE SODIUM [Concomitant]

REACTIONS (6)
  - ESSENTIAL TREMOR [None]
  - DRUG INTOLERANCE [None]
  - HYPERTENSION [None]
  - PSYCHOMOTOR HYPERACTIVITY [None]
  - HEARING IMPAIRED [None]
  - ANXIETY [None]
